FAERS Safety Report 4285714-9 (Version None)
Quarter: 2004Q1

REPORT INFORMATION
  Report Type: 
  Country: None (occurrence: None)
  Receive Date: 20040203
  Receipt Date: 20040122
  Transmission Date: 20041129
  Serious: Yes (Hospitalization)
  Sender: FDA-Public Use
  Company Number: 200410253FR

PATIENT
  Age: 87 Year
  Sex: Female
  Weight: 55 kg

DRUGS (6)
  1. FUROSEMIDE [Suspect]
     Indication: ACUTE PULMONARY OEDEMA
     Dosage: QD IV
     Route: 042
     Dates: start: 20031102, end: 20031105
  2. FUROSEMIDE [Suspect]
     Indication: ACUTE PULMONARY OEDEMA
     Dosage: 40 MG BID PO
     Route: 048
     Dates: start: 20031103, end: 20031106
  3. PERINDOPRIL (COVERSYL) TABLETS [Suspect]
     Indication: CARDIAC FAILURE
     Dosage: 2 MG QD PO
     Route: 048
     Dates: start: 20031103, end: 20031106
  4. DOBUTAMINE HYDROCHLORIDE (DOBUTREX) [Concomitant]
  5. SIMVASTATIN [Concomitant]
  6. HETASTARCH (VOLUVEN) [Concomitant]

REACTIONS (4)
  - CREATINE PHOSPHOKINASE DECREASED [None]
  - DRUG INTERACTION [None]
  - MYOGLOBINAEMIA [None]
  - RENAL FAILURE ACUTE [None]
